FAERS Safety Report 14487703 (Version 1)
Quarter: 2018Q1

REPORT INFORMATION
  Report Type: Report from Study
  Country: US (occurrence: US)
  Receive Date: 20180205
  Receipt Date: 20180205
  Transmission Date: 20180509
  Serious: Yes (Other)
  Sender: FDA-Public Use
  Company Number: PHEH2018US003485

PATIENT
  Sex: Female

DRUGS (1)
  1. COSENTYX [Suspect]
     Active Substance: SECUKINUMAB
     Indication: PRODUCT USED FOR UNKNOWN INDICATION
     Dosage: UNK
     Route: 065
     Dates: start: 20170403

REACTIONS (12)
  - Spondylitis [Recovered/Resolved]
  - Arthritis [Unknown]
  - Blood cholesterol abnormal [Unknown]
  - Pain [Unknown]
  - Musculoskeletal discomfort [Unknown]
  - Intervertebral disc degeneration [Unknown]
  - Carpal tunnel syndrome [Recovering/Resolving]
  - Drug effect delayed [Unknown]
  - Psoriasis [Recovering/Resolving]
  - Rotator cuff syndrome [Recovering/Resolving]
  - Hypertension [Unknown]
  - Malaise [Recovered/Resolved]
